FAERS Safety Report 19444526 (Version 1)
Quarter: 2021Q2

REPORT INFORMATION
  Report Type: Report from Study
  Country: EG (occurrence: EG)
  Receive Date: 20210621
  Receipt Date: 20210621
  Transmission Date: 20210717
  Serious: Yes (Other)
  Sender: FDA-Public Use
  Company Number: NVSC2021EG133241

PATIENT
  Age: 48 Year
  Sex: Male

DRUGS (4)
  1. FLECTOR [Concomitant]
     Active Substance: DICLOFENAC EPOLAMINE
     Indication: PRODUCT USED FOR UNKNOWN INDICATION
     Dosage: 1 DF, QD
     Route: 065
  2. COSENTYX [Suspect]
     Active Substance: SECUKINUMAB
     Indication: PSORIATIC ARTHROPATHY
     Dosage: 1 DF, QMO
     Route: 058
     Dates: start: 20170601, end: 201710
  3. COSENTYX [Suspect]
     Active Substance: SECUKINUMAB
     Indication: ANKYLOSING SPONDYLITIS
     Dosage: 1 DF, QMO
     Route: 058
     Dates: start: 201811
  4. GAPTIN [Concomitant]
     Indication: PRODUCT USED FOR UNKNOWN INDICATION
     Dosage: 1 DF, BID
     Route: 065

REACTIONS (8)
  - Skin abrasion [Not Recovered/Not Resolved]
  - Back pain [Recovered/Resolved]
  - Pain in extremity [Not Recovered/Not Resolved]
  - Pelvic pain [Not Recovered/Not Resolved]
  - Influenza [Recovered/Resolved]
  - Gait disturbance [Not Recovered/Not Resolved]
  - Intervertebral disc disorder [Recovered/Resolved]
  - Hypoaesthesia [Not Recovered/Not Resolved]

NARRATIVE: CASE EVENT DATE: 201811
